FAERS Safety Report 12745627 (Version 1)
Quarter: 2016Q3

REPORT INFORMATION
  Report Type: Report from Study
  Country: US (occurrence: US)
  Receive Date: 20160915
  Receipt Date: 20160915
  Transmission Date: 20161109
  Serious: Yes (Other)
  Sender: FDA-Public Use
  Company Number: US-MUNDIPHARMA DS AND PHARMACOVIGILANCE-USA-2016-0133529

PATIENT
  Age: 31 Year
  Sex: Female

DRUGS (2)
  1. OXYCONTIN [Suspect]
     Active Substance: OXYCODONE HYDROCHLORIDE
     Indication: NECK PAIN
     Dosage: 80 MG, BID
     Route: 048
     Dates: start: 201002
  2. OXYCONTIN [Suspect]
     Active Substance: OXYCODONE HYDROCHLORIDE
     Indication: PAIN

REACTIONS (1)
  - Bronchitis [Recovered/Resolved]

NARRATIVE: CASE EVENT DATE: 20160904
